FAERS Safety Report 23510061 (Version 3)
Quarter: 2025Q3

REPORT INFORMATION
  Report Type: Spontaneous
  Country: US (occurrence: US)
  Receive Date: 20240211
  Receipt Date: 20250721
  Transmission Date: 20251021
  Serious: Yes (Other)
  Sender: SANOFI AVENTIS
  Company Number: US-SA-SAC20240209000064

PATIENT
  Age: 53 Year
  Sex: Female

DRUGS (8)
  1. KEVZARA [Suspect]
     Active Substance: SARILUMAB
     Indication: Polymyalgia rheumatica
     Dosage: 200 MG, QOW
     Route: 058
     Dates: start: 20230711
  2. WEGOVY [Concomitant]
     Active Substance: SEMAGLUTIDE
  3. SPIRONOLACTONE [Concomitant]
     Active Substance: SPIRONOLACTONE
  4. VITAMINS [Concomitant]
     Active Substance: VITAMINS
  5. LISINOPRIL [Concomitant]
     Active Substance: LISINOPRIL
  6. PROGESTERONE [Concomitant]
     Active Substance: PROGESTERONE
  7. PREDNISONE [Concomitant]
     Active Substance: PREDNISONE
  8. ESTRADIOL [Concomitant]
     Active Substance: ESTRADIOL

REACTIONS (3)
  - Polymyalgia rheumatica [Not Recovered/Not Resolved]
  - Pain [Not Recovered/Not Resolved]
  - Drug ineffective [Unknown]

NARRATIVE: CASE EVENT DATE: 20240101
